FAERS Safety Report 20415650 (Version 1)
Quarter: 2022Q1

REPORT INFORMATION
  Report Type: Spontaneous
  Country: US (occurrence: US)
  Receive Date: 20220202
  Receipt Date: 20220202
  Transmission Date: 20220423
  Serious: No
  Sender: FDA-Public Use
  Company Number: US-AVET LIFESCIENCES LTD-2022-AVET-000016

PATIENT
  Age: 45 Year
  Sex: Female

DRUGS (4)
  1. BUPROPION HYDROCHLORIDE [Suspect]
     Active Substance: BUPROPION HYDROCHLORIDE
     Indication: Depression
     Dosage: Q.D. (1 PILL ONCE A DAY), 90 DAY PRESCRIPTION
     Dates: start: 20220119
  2. BUPROPION HYDROCHLORIDE [Suspect]
     Active Substance: BUPROPION HYDROCHLORIDE
     Indication: Anxiety
  3. REMERON [Concomitant]
     Active Substance: MIRTAZAPINE
  4. TRAZODONE [Concomitant]
     Active Substance: TRAZODONE HYDROCHLORIDE

REACTIONS (2)
  - Agitation [Unknown]
  - Central nervous system stimulation [Unknown]

NARRATIVE: CASE EVENT DATE: 20220119
